FAERS Safety Report 7179041-X (Version None)
Quarter: 2010Q4

REPORT INFORMATION
  Report Type: 
  Country: None (occurrence: None)
  Receive Date: 20101209
  Receipt Date: 20101203
  Transmission Date: 20110411
  Serious: Yes (Hospitalization)
  Sender: FDA-Public Use
  Company Number: DSA_44227_2010

PATIENT
  Sex: Female

DRUGS (1)
  1. XENAZINE 12.5 MG (NOT SPECIFIED) [Suspect]
     Indication: CHOREA
     Dosage: (12.5 MG TID ORAL)
     Route: 048
     Dates: start: 20100522

REACTIONS (2)
  - GALLBLADDER OPERATION [None]
  - NEOPLASM MALIGNANT [None]
